FAERS Safety Report 7873606-5 (Version None)
Quarter: 2011Q4

REPORT INFORMATION
  Report Type: 
  Country: None (occurrence: None)
  Receive Date: 20111030
  Receipt Date: 20110506
  Transmission Date: 20120403
  Serious: No
  Sender: FDA-Public Use
  Company Number: US-AMGEN-USASP2011023812

PATIENT
  Age: 61 Year
  Sex: Female

DRUGS (4)
  1. METFORMIN HCL [Concomitant]
  2. GABAPENTIN [Concomitant]
  3. ENBREL [Suspect]
     Indication: PSORIATIC ARTHROPATHY
     Dosage: 50 MG, QWK
     Dates: start: 20110429
  4. STATIN                             /00036501/ [Concomitant]

REACTIONS (3)
  - EYE SWELLING [None]
  - TACHYCARDIA [None]
  - SWOLLEN TONGUE [None]
